FAERS Safety Report 13752813 (Version 1)
Quarter: 2017Q3

REPORT INFORMATION
  Report Type: Spontaneous
  Country: US (occurrence: US)
  Receive Date: 20170713
  Receipt Date: 20170713
  Transmission Date: 20171127
  Serious: Yes (Other)
  Sender: FDA-Public Use
  Company Number: None

PATIENT
  Age: 63 Year
  Sex: Female
  Weight: 72.45 kg

DRUGS (2)
  1. TRANSDERM SCOP [Suspect]
     Active Substance: SCOPOLAMINE
     Indication: PREOPERATIVE CARE
     Dosage: ?          QUANTITY:1 PATCH(ES);OTHER FREQUENCY:PRIOR TO SURGERY;?
     Route: 062
  2. FEXOPHENADINE [Concomitant]

REACTIONS (1)
  - Mydriasis [None]

NARRATIVE: CASE EVENT DATE: 20170707
